FAERS Safety Report 24362611 (Version 1)
Quarter: 2024Q3

REPORT INFORMATION
  Report Type: Spontaneous
  Country: GB (occurrence: GB)
  Receive Date: 20240925
  Receipt Date: 20240925
  Transmission Date: 20241017
  Serious: Yes (Other)
  Sender: JOHNSON AND JOHNSON
  Company Number: GB-MHRA-EMIS-8777-e04f91e6-f116-4842-92ec-16cccbd87e86

PATIENT
  Age: 36 Year
  Sex: Female
  Weight: 114 kg

DRUGS (9)
  1. STELARA [Suspect]
     Active Substance: USTEKINUMAB
     Indication: Product used for unknown indication
     Dosage: 0
     Route: 058
     Dates: start: 20240801
  2. BENZYDAMINE [Concomitant]
     Active Substance: BENZYDAMINE
     Dosage: USE 4-8 SPRAYS EVERY ONE AND A HALF TO THREE HOURS
     Dates: start: 20240606
  3. POTASSIUM [Concomitant]
     Active Substance: POTASSIUM
     Dosage: TAKE ONE TABLET THREE TIMES PER DAY
     Dates: start: 20240611, end: 20240808
  4. METRONIDAZOLE [Concomitant]
     Active Substance: METRONIDAZOLE
     Dosage: ONE TO BE TAKEN THREE TIMES A DAY
     Dates: start: 20240618, end: 20240810
  5. CIPROFLOXACIN [Concomitant]
     Active Substance: CIPROFLOXACIN
     Dosage: ONE TO BE TAKEN TWICE A DAY
     Dates: start: 20240618, end: 20240810
  6. CYCLIZINE [Concomitant]
     Active Substance: CYCLIZINE
     Dosage: ONE TO BE TAKEN UP TO THREE TIMES A DAY
     Dates: start: 20240627, end: 20240726
  7. NYSTATIN [Concomitant]
     Active Substance: NYSTATIN
     Dosage: 1ML TO BE DROPPED INTO THE MOUTH FOUR TIMES A DAY.
     Dates: start: 20240701, end: 20240810
  8. POTASSIUM CHLORIDE [Concomitant]
     Active Substance: POTASSIUM CHLORIDE
     Dosage: TAKE 10ML THREE TIMES A DAY FOR 3 DAYS
     Dates: start: 20240723
  9. FERROUS FUMARATE [Concomitant]
     Active Substance: FERROUS FUMARATE
     Dosage: ONE TO BE TAKEN EACH DAY
     Dates: start: 20240902

REACTIONS (1)
  - Alopecia totalis [Unknown]

NARRATIVE: CASE EVENT DATE: 20240821
